FAERS Safety Report 25358913 (Version 6)
Quarter: 2025Q4

REPORT INFORMATION
  Report Type: Report from Study
  Country: US (occurrence: None)
  Receive Date: 20250526
  Receipt Date: 20251203
  Transmission Date: 20260118
  Serious: Yes (Other)
  Sender: UCB
  Company Number: US-UCBSA-2025029498

PATIENT
  Age: 41 Year
  Weight: 120 kg

DRUGS (6)
  1. FENFLURAMINE HYDROCHLORIDE [Suspect]
     Active Substance: FENFLURAMINE HYDROCHLORIDE
     Indication: Seizure
     Dosage: UNK
  2. FENFLURAMINE HYDROCHLORIDE [Suspect]
     Active Substance: FENFLURAMINE HYDROCHLORIDE
     Indication: Lennox-Gastaut syndrome
     Dosage: 22 MG/DAY
  3. FENFLURAMINE HYDROCHLORIDE [Suspect]
     Active Substance: FENFLURAMINE HYDROCHLORIDE
     Dosage: 5 MILLILITER, 2X/DAY (BID)
  4. FENFLURAMINE HYDROCHLORIDE [Suspect]
     Active Substance: FENFLURAMINE HYDROCHLORIDE
     Dosage: 5 MILLILITER, 2X/DAY (BID)
  5. FENFLURAMINE HYDROCHLORIDE [Suspect]
     Active Substance: FENFLURAMINE HYDROCHLORIDE
     Dosage: 5.5 MILLILITER, 2X/DAY (BID)
  6. FENFLURAMINE HYDROCHLORIDE [Suspect]
     Active Substance: FENFLURAMINE HYDROCHLORIDE
     Dosage: 5.5 MILLILITER, 2X/DAY (BID)

REACTIONS (7)
  - Tricuspid valve incompetence [Not Recovered/Not Resolved]
  - Seizure [Not Recovered/Not Resolved]
  - Atonic seizures [Not Recovered/Not Resolved]
  - Eye irritation [Recovering/Resolving]
  - Gait disturbance [Not Recovered/Not Resolved]
  - Wheelchair user [Not Recovered/Not Resolved]
  - Therapeutic product effect incomplete [Unknown]
